FAERS Safety Report 7767840-2 (Version None)
Quarter: 2011Q3

REPORT INFORMATION
  Report Type: 
  Country: None (occurrence: None)
  Receive Date: 20110922
  Receipt Date: 20100827
  Transmission Date: 20111222
  Serious: Yes (Other)
  Sender: FDA-Public Use
  Company Number: US-ASTRAZENECA-2008UW01154

PATIENT
  Age: 10856 Day
  Sex: Male
  Weight: 113.4 kg

DRUGS (9)
  1. SEROQUEL [Suspect]
     Indication: ANXIETY
     Route: 048
     Dates: start: 20060818, end: 20071201
  2. ACCUPRIL [Concomitant]
     Dosage: 10-20 MG QD
     Route: 048
  3. RISPERDAL [Concomitant]
     Indication: ANXIETY
     Dates: start: 20040101
  4. GLUCOTROL XL [Concomitant]
     Dosage: 10 MG QD INCREASED TO 10 MG TWICE A DAY
     Route: 048
  5. PREDNISONE [Concomitant]
     Dosage: 10-30 MG QD
     Route: 048
  6. RISPERDAL [Concomitant]
     Indication: DEPRESSION
     Dates: start: 20040101
  7. METFORMIN HCL [Concomitant]
     Dosage: TITRATED FROM 500 TO 800 TO 850 MG TWICE A DAY
  8. LIPITOR [Concomitant]
     Dosage: DOSE INCREASED FROM 10 MG TO 20 MG QD
  9. SEROQUEL [Suspect]
     Indication: DEPRESSION
     Route: 048
     Dates: start: 20060818, end: 20071201

REACTIONS (5)
  - DIABETES MELLITUS INADEQUATE CONTROL [None]
  - ADVERSE DRUG REACTION [None]
  - TYPE 2 DIABETES MELLITUS [None]
  - DIABETIC COMPLICATION [None]
  - OBESITY [None]
